FAERS Safety Report 7543549-5 (Version None)
Quarter: 2011Q2

REPORT INFORMATION
  Report Type: 
  Country: None (occurrence: None)
  Receive Date: 20110613
  Receipt Date: 20011225
  Transmission Date: 20111010
  Serious: Yes (Death)
  Sender: FDA-Public Use
  Company Number: PHBS2001JP12794

PATIENT
  Sex: Female
  Weight: 47 kg

DRUGS (3)
  1. LOCHOLEST [Suspect]
     Indication: HYPERCHOLESTEROLAEMIA
     Dosage: 20 MG/DAY
     Route: 048
     Dates: start: 20001213
  2. AMLODIPINE [Concomitant]
     Dates: start: 20000621
  3. CANDESARTAN CILEXETIL [Concomitant]
     Dates: start: 20001115

REACTIONS (2)
  - PYREXIA [None]
  - CARDIO-RESPIRATORY ARREST [None]
